FAERS Safety Report 8900125 (Version 1)
Quarter: 2012Q4

REPORT INFORMATION
  Report Type: 
  Country: US (occurrence: US)
  Receive Date: 20121109
  Receipt Date: 20121109
  Transmission Date: 20130627
  Serious: Yes (Other)
  Sender: FDA-Public Use
  Company Number: CHPA2012US023027

PATIENT
  Age: 70 Year
  Sex: Female

DRUGS (3)
  1. MAALOX ANTACID WITH ANTI-GAS REGULAR [Suspect]
     Indication: GASTROOESOPHAGEAL REFLUX DISEASE
     Dosage: 1 tablespoon, Unk
     Route: 048
     Dates: start: 1992
  2. MAALOX ANTACID WITH ANTI-GAS REGULAR [Suspect]
     Dosage: UNK, 2 to 3 times daily
     Dates: start: 1992
  3. MAALOX ANTACID/ANTIGAS MAX QDTABS ASST [Suspect]
     Indication: GASTROOESOPHAGEAL REFLUX DISEASE
     Dosage: 1 DF, once every 2 weeks
     Dates: start: 1992

REACTIONS (2)
  - Colon cancer [Recovered/Resolved]
  - Off label use [Unknown]
